FAERS Safety Report 24719642 (Version 1)
Quarter: 2024Q4

REPORT INFORMATION
  Report Type: Spontaneous
  Country: US (occurrence: US)
  Receive Date: 20241211
  Receipt Date: 20241211
  Transmission Date: 20250114
  Serious: No
  Sender: SPECGX
  Company Number: US-SPECGX-T202401996

PATIENT
  Sex: Female

DRUGS (1)
  1. FENTANYL TRANSDERMAL SYSTEM [Suspect]
     Active Substance: FENTANYL
     Indication: Product used for unknown indication
     Dosage: EVERY 6 DAYS
     Route: 062

REACTIONS (1)
  - Inappropriate schedule of product administration [Unknown]
